FAERS Safety Report 7743522-8 (Version None)
Quarter: 2011Q3

REPORT INFORMATION
  Report Type: 
  Country: None (occurrence: None)
  Receive Date: 20110912
  Receipt Date: 20110901
  Transmission Date: 20111222
  Serious: Yes (Other)
  Sender: FDA-Public Use
  Company Number: CA-JNJFOC-20110604430

PATIENT
  Sex: Male
  Weight: 73.3 kg

DRUGS (10)
  1. REMICADE [Suspect]
     Indication: RHEUMATOID ARTHRITIS
     Route: 042
     Dates: start: 20060810
  2. REMICADE [Suspect]
     Route: 042
     Dates: start: 20110901
  3. METHOTREXATE [Concomitant]
     Route: 065
  4. DILTIAZEM [Concomitant]
     Route: 065
  5. MORPHINE [Concomitant]
     Route: 065
  6. HALCION [Concomitant]
     Route: 065
  7. NITROGLYCERIN [Concomitant]
     Indication: ANGINA PECTORIS
  8. FOSAMAX [Concomitant]
     Route: 065
  9. COUMADIN [Concomitant]
     Route: 065
  10. OTHER THERAPEUTIC MEDICATION [Concomitant]
     Route: 050

REACTIONS (5)
  - INFUSION RELATED REACTION [None]
  - NAUSEA [None]
  - INGUINAL HERNIA [None]
  - FLUSHING [None]
  - VOMITING [None]
